FAERS Safety Report 11356585 (Version 1)
Quarter: 2015Q3

REPORT INFORMATION
  Report Type: Spontaneous
  Country: US (occurrence: US)
  Receive Date: 20150803
  Receipt Date: 20150803
  Transmission Date: 20151125
  Serious: Yes (Other)
  Sender: FDA-Public Use
  Company Number: US-ELI_LILLY_AND_COMPANY-US200710003789

PATIENT
  Sex: Male
  Weight: 136.5 kg

DRUGS (32)
  1. SEROQUEL [Concomitant]
     Active Substance: QUETIAPINE FUMARATE
     Dosage: 100 MG, DAILY (1/D)
     Dates: start: 20010727, end: 20010801
  2. HALOPERIDOL. [Concomitant]
     Active Substance: HALOPERIDOL
     Dosage: 5 MG, 4/D
     Dates: start: 20000919, end: 20010406
  3. ZANAFLEX [Concomitant]
     Active Substance: TIZANIDINE HYDROCHLORIDE
     Dosage: 2 MG, 3/D
     Dates: start: 20020319
  4. LITHIUM. [Concomitant]
     Active Substance: LITHIUM
     Dosage: 300 MG, 3/D
     Dates: start: 20020813
  5. ZYPREXA [Suspect]
     Active Substance: OLANZAPINE
     Dosage: 10 MG, DAILY (1/D)
     Dates: start: 20060502
  6. DEPAKOTE [Concomitant]
     Active Substance: DIVALPROEX SODIUM
     Dosage: 500 MG, 2/D
     Dates: start: 20000919
  7. DEPAKOTE [Concomitant]
     Active Substance: DIVALPROEX SODIUM
     Dosage: 750 MG, UNK
     Dates: start: 20030215
  8. PAXIL CR [Concomitant]
     Active Substance: PAROXETINE HYDROCHLORIDE
     Dosage: 25 MG, DAILY (1/D)
     Dates: start: 20020822
  9. HALDOL [Concomitant]
     Active Substance: HALOPERIDOL
     Dosage: 100 MG, 2/M
     Route: 030
     Dates: start: 20000819
  10. HALOPERIDOL. [Concomitant]
     Active Substance: HALOPERIDOL
     Dosage: 5 MG, 3/D
     Dates: start: 20010407, end: 20010826
  11. TRIAMTEREN HCT [Concomitant]
     Dates: start: 20010312
  12. ZYPREXA [Suspect]
     Active Substance: OLANZAPINE
     Indication: PSYCHOTIC DISORDER
     Dosage: 50 MG, UNK
     Dates: start: 2000
  13. SEROQUEL [Concomitant]
     Active Substance: QUETIAPINE FUMARATE
     Dosage: 100 MG, DAILY (1/D)
     Dates: start: 20000919, end: 20010406
  14. HALOPERIDOL. [Concomitant]
     Active Substance: HALOPERIDOL
     Dosage: 5 MG, 2/D
     Dates: start: 20030521
  15. FUROSEMIDE. [Concomitant]
     Active Substance: FUROSEMIDE
     Dosage: 40 MG, DAILY (1/D)
     Dates: start: 20010514
  16. DEPAKOTE [Concomitant]
     Active Substance: DIVALPROEX SODIUM
     Dosage: 500 MG, UNK
     Dates: start: 20021016, end: 20030214
  17. HYDROXYZINE PAMOATE. [Concomitant]
     Active Substance: HYDROXYZINE PAMOATE
     Dosage: 50 MG, 2/D
     Dates: start: 20000919, end: 20010115
  18. LORAZEPAM. [Concomitant]
     Active Substance: LORAZEPAM
     Dosage: 1 MG, 3/D
     Dates: start: 20020813
  19. HYDROXYZINE [Concomitant]
     Active Substance: HYDROXYZINE\HYDROXYZINE HYDROCHLORIDE
     Dosage: 50 MG, DAILY (1/D)
     Dates: start: 20010115, end: 20010406
  20. SEROQUEL [Concomitant]
     Active Substance: QUETIAPINE FUMARATE
     Dosage: 100 MG, DAILY (1/D)
     Dates: start: 20020510
  21. SEROQUEL [Concomitant]
     Active Substance: QUETIAPINE FUMARATE
     Dosage: 25 MG, 2/D
     Dates: start: 20030515
  22. COGENTIN [Concomitant]
     Active Substance: BENZTROPINE MESYLATE
     Dosage: 1 MG, 2/D
     Dates: start: 20000919
  23. SEROQUEL [Concomitant]
     Active Substance: QUETIAPINE FUMARATE
     Dosage: 200 MG, DAILY (1/D)
     Dates: start: 20010407, end: 20010726
  24. SEROQUEL [Concomitant]
     Active Substance: QUETIAPINE FUMARATE
     Dosage: 100 MG, 2/D
     Dates: start: 20020122, end: 20020509
  25. HYDROXYZINE PAMOATE. [Concomitant]
     Active Substance: HYDROXYZINE PAMOATE
     Dosage: 50 MG, 2/D
     Dates: start: 20010407
  26. PROPOXYPHENE NAPSYLATE [Concomitant]
     Active Substance: PROPOXYPHENE NAPSYLATE
     Dosage: 100 MG, 3/D
     Dates: start: 20030206
  27. SEROQUEL [Concomitant]
     Active Substance: QUETIAPINE FUMARATE
     Dosage: 25 MG, 3/D
     Dates: start: 20021217
  28. SKELAXIN [Concomitant]
     Active Substance: METAXALONE
     Dosage: 400 MG, EVERY 4 HRS
     Dates: start: 20020305
  29. CLONAZEPAM. [Concomitant]
     Active Substance: CLONAZEPAM
     Dosage: 1 MG, DAILY (1/D)
     Dates: start: 20030501
  30. DEPAKOTE [Concomitant]
     Active Substance: DIVALPROEX SODIUM
     Dosage: 250 MG, DAILY (1/D)
     Dates: start: 20020822, end: 20021015
  31. HALOPERIDOL. [Concomitant]
     Active Substance: HALOPERIDOL
     Dosage: 5 MG, DAILY (1/D)
     Dates: start: 20010827
  32. CLONAZEPAM. [Concomitant]
     Active Substance: CLONAZEPAM
     Dosage: 0.5 MG, 3/D
     Dates: start: 20020730

REACTIONS (10)
  - Hypertension [Unknown]
  - Glucose tolerance impaired [Not Recovered/Not Resolved]
  - Body dysmorphic disorder [Not Recovered/Not Resolved]
  - Sexual dysfunction [Unknown]
  - Gynaecomastia [Not Recovered/Not Resolved]
  - Dizziness [Unknown]
  - Prescribed overdose [Not Recovered/Not Resolved]
  - Weight increased [Not Recovered/Not Resolved]
  - Somnambulism [Not Recovered/Not Resolved]
  - Psychotic disorder [Unknown]

NARRATIVE: CASE EVENT DATE: 2000
